FAERS Safety Report 9252148 (Version 1)
Quarter: 2013Q1

REPORT INFORMATION
  Report Type: Spontaneous
  Country: US (occurrence: None)
  Receive Date: 20130305
  Receipt Date: 20130305
  Transmission Date: 20140127
  Serious: Yes (Hospitalization)
  Sender: FDA-Public Use
  Company Number: 163-21880-12081875 (0)

PATIENT
  Age: 56 Year
  Sex: Male

DRUGS (4)
  1. REVLIMID [Suspect]
     Indication: ACUTE MYELOID LEUKAEMIA
     Dosage: 5MG, 21 IN 21 D, PO
     Route: 048
     Dates: start: 20120614
  2. LEVOFLOXACIN (LEVOFLOXACIN) [Concomitant]
  3. ALBUTEROL SULFATE (SALBUTAMOL SULFATE) [Concomitant]
  4. ADVAIR (SERETIDE MITE) [Concomitant]

REACTIONS (1)
  - Sinusitis [None]
